FAERS Safety Report 5949729-4 (Version None)
Quarter: 2008Q4

REPORT INFORMATION
  Report Type: 
  Country: None (occurrence: None)
  Receive Date: 20081112
  Receipt Date: 20081002
  Transmission Date: 20090506
  Serious: No
  Sender: FDA-Public Use
  Company Number: US-BAYER-200834906NA

PATIENT
  Age: 69 Year
  Sex: Male
  Weight: 95 kg

DRUGS (1)
  1. MAGNEVIST [Suspect]
     Indication: ARTERIOGRAM CAROTID
     Dosage: TOTAL DAILY DOSE: 30 ML  UNIT DOSE: 50 ML
     Route: 042
     Dates: start: 20081002, end: 20081002

REACTIONS (2)
  - PRURITUS [None]
  - URTICARIA [None]
